FAERS Safety Report 5866540-3 (Version None)
Quarter: 2008Q3

REPORT INFORMATION
  Report Type: 
  Country: None (occurrence: None)
  Receive Date: 20080902
  Receipt Date: 20080825
  Transmission Date: 20090109
  Serious: Yes (Death, Hospitalization)
  Sender: FDA-Public Use
  Company Number: IT-CELGENEUS-083-21880-08081194

PATIENT
  Sex: Female

DRUGS (4)
  1. REVLIMID [Suspect]
     Indication: MULTIPLE MYELOMA
     Route: 048
     Dates: start: 20080521, end: 20080807
  2. DEXAMETHASONE TAB [Concomitant]
     Indication: MULTIPLE MYELOMA
     Route: 065
     Dates: start: 20080501
  3. MANNITOL [Concomitant]
     Indication: DRUG USE FOR UNKNOWN INDICATION
     Route: 065
  4. STEROIDS [Concomitant]
     Indication: DRUG USE FOR UNKNOWN INDICATION
     Route: 065

REACTIONS (2)
  - MULTIPLE MYELOMA [None]
  - PNEUMONIA [None]
